FAERS Safety Report 4644448-9 (Version None)
Quarter: 2005Q2

REPORT INFORMATION
  Report Type: 
  Country: None (occurrence: None)
  Receive Date: 20050331
  Receipt Date: 20041206
  Transmission Date: 20051028
  Serious: No
  Sender: FDA-Public Use
  Company Number: 04P-163-0282292-00

PATIENT
  Age: 37 Year
  Sex: Male
  Weight: 135.4 kg

DRUGS (8)
  1. HUMIRA [Suspect]
     Indication: MOUTH ULCERATION
     Dosage: 40 MG, 2 IN 1 M, SUBCUTANEOUS
     Route: 058
     Dates: start: 20040921
  2. SINGULAIR [Concomitant]
  3. ADVAIR DISKUS 100/50 [Concomitant]
  4. PANTOPRAZOLE SODIUM [Concomitant]
  5. METHOTREXATE SODIUM [Concomitant]
  6. CALCIUM GLUCONATE [Concomitant]
  7. OXYCOCET [Concomitant]
  8. CYCLOBENZAPRINE HYDROCHLORIDE [Concomitant]

REACTIONS (8)
  - ARTHRALGIA [None]
  - BLOOD POTASSIUM DECREASED [None]
  - CERVICAL CORD COMPRESSION [None]
  - HEPATIC ENZYME INCREASED [None]
  - HYPOAESTHESIA [None]
  - OEDEMA PERIPHERAL [None]
  - PARAESTHESIA [None]
  - ROAD TRAFFIC ACCIDENT [None]
